FAERS Safety Report 25164962 (Version 1)
Quarter: 2025Q2

REPORT INFORMATION
  Report Type: Spontaneous
  Country: US (occurrence: US)
  Receive Date: 20250406
  Receipt Date: 20250406
  Transmission Date: 20250716
  Serious: Yes (Other)
  Sender: BAUSCH AND LOMB
  Company Number: US-BAUSCHBL-2025BNL005603

PATIENT
  Sex: Female

DRUGS (4)
  1. BLINK TRIPLE CARE [Suspect]
     Active Substance: POLYETHYLENE GLYCOL 400
     Indication: Product used for unknown indication
     Route: 065
  2. BLINK TRIPLE CARE [Suspect]
     Active Substance: POLYETHYLENE GLYCOL 400
  3. BLINK GEL TEARS [Suspect]
     Active Substance: POLYETHYLENE GLYCOL 400
     Indication: Product used for unknown indication
     Route: 065
  4. BLINK GEL TEARS [Suspect]
     Active Substance: POLYETHYLENE GLYCOL 400

REACTIONS (3)
  - Blindness unilateral [Unknown]
  - Vision blurred [Unknown]
  - Ocular discomfort [Unknown]
